FAERS Safety Report 12723759 (Version 1)
Quarter: 2016Q3

REPORT INFORMATION
  Report Type: Spontaneous
  Country: US (occurrence: US)
  Receive Date: 20160908
  Receipt Date: 20160908
  Transmission Date: 20161109
  Serious: No
  Sender: FDA-Public Use
  Company Number: US-PFIZER INC-2016419153

PATIENT
  Age: 46 Year
  Sex: Female
  Weight: 59 kg

DRUGS (1)
  1. PREMPRO [Suspect]
     Active Substance: ESTROGENS, CONJUGATED\MEDROXYPROGESTERONE ACETATE
     Indication: MENOPAUSAL SYMPTOMS
     Dosage: [ESTROGENS CONJUGATED 0.3MG]/[MEDROXYPROGESTERONE ACETATE 1.5MG], PILL, ORALLY, ONCE A DAY
     Route: 048
     Dates: end: 20160902

REACTIONS (3)
  - Fatigue [Unknown]
  - Vision blurred [Recovering/Resolving]
  - Chest pain [Recovering/Resolving]
